FAERS Safety Report 6722054-X (Version None)
Quarter: 2010Q2

REPORT INFORMATION
  Report Type: 
  Country: None (occurrence: None)
  Receive Date: 20100512
  Receipt Date: 20100504
  Transmission Date: 20101027
  Serious: Yes (Hospitalization)
  Sender: FDA-Public Use
  Company Number: DE-TEVA-187899ISR

PATIENT
  Age: 20 Year
  Sex: Female
  Weight: 55 kg

DRUGS (1)
  1. GABAPENTIN [Suspect]
     Indication: PAIN
     Route: 048
     Dates: start: 20081102

REACTIONS (1)
  - NARCOLEPSY [None]
